FAERS Safety Report 12191753 (Version 1)
Quarter: 2016Q1

REPORT INFORMATION
  Report Type: Spontaneous
  Country: US (occurrence: US)
  Receive Date: 20160318
  Receipt Date: 20160318
  Transmission Date: 20160526
  Serious: No
  Sender: FDA-Public Use
  Company Number: US-PFIZER INC-2016140297

PATIENT
  Age: 29 Year
  Sex: Female
  Weight: 56.69 kg

DRUGS (1)
  1. IBRANCE [Suspect]
     Active Substance: PALBOCICLIB
     Indication: BREAST CANCER METASTATIC
     Dosage: 125 MG CAPSULES, CYCLIC, DAYS 1-21 Q28 DAYS
     Route: 048
     Dates: start: 20160219

REACTIONS (2)
  - Stomatitis [Unknown]
  - White blood cell count decreased [Unknown]
